FAERS Safety Report 6946504-9 (Version None)
Quarter: 2010Q3

REPORT INFORMATION
  Report Type: 
  Country: None (occurrence: None)
  Receive Date: 20100827
  Receipt Date: 20090731
  Transmission Date: 20110219
  Serious: No
  Sender: FDA-Public Use
  Company Number: US-ABBOTT-09P-163-0589019-00

PATIENT
  Sex: Female
  Weight: 92.616 kg

DRUGS (10)
  1. NIASPAN [Suspect]
     Indication: LOW DENSITY LIPOPROTEIN INCREASED
     Route: 048
     Dates: start: 20090728
  2. NIASPAN [Suspect]
     Indication: BLOOD CHOLESTEROL INCREASED
  3. LEVOXYL [Concomitant]
     Indication: THYROIDECTOMY
     Route: 048
  4. ACETAMINOPHEN [Concomitant]
     Indication: BACK PAIN
     Route: 048
  5. ASPIRIN [Concomitant]
     Indication: CARDIAC DISORDER
     Route: 048
  6. ASPIRIN [Concomitant]
     Indication: PROPHYLAXIS
  7. ASPIRIN [Concomitant]
     Indication: FLUSHING
  8. GABAPENTIN [Concomitant]
     Indication: LUMBAR SPINAL STENOSIS
     Dosage: 2 IN 1 DAY AS NEEDED
     Route: 048
  9. BENICAR HCT [Concomitant]
     Indication: HYPERTENSION
     Dosage: 20MG/12.5MG DAILY
     Route: 048
  10. ZETIA [Concomitant]
     Indication: BLOOD CHOLESTEROL
     Route: 048

REACTIONS (4)
  - APHASIA [None]
  - DISTURBANCE IN ATTENTION [None]
  - DIZZINESS [None]
  - HEART RATE INCREASED [None]
